FAERS Safety Report 7548656-9 (Version None)
Quarter: 2011Q2

REPORT INFORMATION
  Report Type: 
  Country: None (occurrence: None)
  Receive Date: 20110615
  Receipt Date: 20110531
  Transmission Date: 20111010
  Serious: No
  Sender: FDA-Public Use
  Company Number: US-B.I. PHARMACEUTICALS,INC./RIDGEFIELD-2011-BP-12556BP

PATIENT
  Sex: Female
  Weight: 101.6 kg

DRUGS (9)
  1. COREG [Concomitant]
  2. CELEXA [Concomitant]
  3. ALDACTONE [Concomitant]
  4. IMDUR [Concomitant]
  5. VITAMIN B-12 [Concomitant]
  6. NORVASC [Concomitant]
  7. FERROUS SULFATE TAB [Concomitant]
  8. PRADAXA [Suspect]
     Indication: ATRIAL FIBRILLATION
     Dosage: 300 MG
     Route: 048
     Dates: end: 20110401
  9. ELAVIL [Concomitant]

REACTIONS (1)
  - HEADACHE [None]
